FAERS Safety Report 23063328 (Version 2)
Quarter: 2023Q4

REPORT INFORMATION
  Report Type: Spontaneous
  Country: CN (occurrence: CN)
  Receive Date: 20231013
  Receipt Date: 20231017
  Transmission Date: 20240109
  Serious: Yes (Other)
  Sender: FDA-Public Use
  Company Number: CN-GLAXOSMITHKLINE-CN2023GSK140811

PATIENT

DRUGS (13)
  1. ZEJULA [Suspect]
     Active Substance: NIRAPARIB
     Indication: Ovarian cancer
     Dosage: UNK
     Route: 048
     Dates: start: 20210920
  2. ZEJULA [Suspect]
     Active Substance: NIRAPARIB
     Dosage: 150 MG, QD
     Route: 048
  3. ZEJULA [Suspect]
     Active Substance: NIRAPARIB
     Dosage: 200 MG, QD
     Route: 048
     Dates: start: 20220724, end: 20220814
  4. ZEJULA [Suspect]
     Active Substance: NIRAPARIB
     Dosage: 150 MG, QD
     Route: 048
     Dates: start: 20220826
  5. ZEJULA [Suspect]
     Active Substance: NIRAPARIB
     Dosage: 200 MG, QD
     Route: 048
     Dates: start: 202212
  6. ZEJULA [Suspect]
     Active Substance: NIRAPARIB
     Dosage: 100 MG, QD
     Route: 048
  7. ZEJULA [Suspect]
     Active Substance: NIRAPARIB
     Dosage: 200 MG, QD
     Route: 048
     Dates: start: 20230227
  8. ZEJULA [Suspect]
     Active Substance: NIRAPARIB
     Dosage: UNK, QD
     Route: 048
     Dates: end: 20230823
  9. ZEJULA [Suspect]
     Active Substance: NIRAPARIB
     Dosage: 300 MG, QD
     Route: 048
     Dates: start: 20230908
  10. LENVATINIB [Concomitant]
     Active Substance: LENVATINIB
     Indication: Ovarian cancer
     Dosage: UNK
     Dates: start: 202212
  11. LENVATINIB [Concomitant]
     Active Substance: LENVATINIB
     Dosage: 12 MG, QD(GIVEN FOR NEARLY 1 MONTH)
     Dates: start: 20230823
  12. NORVASC [Concomitant]
     Active Substance: AMLODIPINE BESYLATE
     Indication: Product used for unknown indication
     Dosage: UNK
  13. HYDROCHLOROTHIAZIDE\IRBESARTAN [Concomitant]
     Active Substance: HYDROCHLOROTHIAZIDE\IRBESARTAN
     Indication: Product used for unknown indication
     Dosage: UNK

REACTIONS (14)
  - Gallbladder enlargement [Unknown]
  - Platelet count decreased [Unknown]
  - Haemoglobin decreased [Unknown]
  - Carbohydrate antigen 125 increased [Unknown]
  - Human epididymis protein 4 increased [Unknown]
  - Investigation abnormal [Unknown]
  - Hepatic cyst [Unknown]
  - Adrenomegaly [Unknown]
  - Fat tissue increased [Unknown]
  - Lymphadenopathy [Unknown]
  - Arteriosclerosis [Unknown]
  - Oedema [Unknown]
  - Tumour marker increased [Unknown]
  - Off label use [Unknown]

NARRATIVE: CASE EVENT DATE: 20221201
